FAERS Safety Report 4869784-2 (Version None)
Quarter: 2005Q4

REPORT INFORMATION
  Report Type: 
  Country: None (occurrence: None)
  Receive Date: 20051223
  Receipt Date: 20051215
  Transmission Date: 20060501
  Serious: Yes (Death, Hospitalization)
  Sender: FDA-Public Use
  Company Number: 200512998BWH

PATIENT
  Age: 62 Year
  Sex: Male

DRUGS (8)
  1. DACARBAZINE [Suspect]
     Indication: METASTATIC MALIGNANT MELANOMA
     Dosage: 2200 MG, TOTAL DAILY, INTRAVENOUS
     Route: 042
     Dates: start: 20051117
  2. INTERFERON [Concomitant]
  3. AMITRIPTYLINE HCL [Concomitant]
  4. ASPIRIN [Concomitant]
  5. DILAUDID [Concomitant]
  6. MORPHINE [Concomitant]
  7. MULTIVITAMIN [Concomitant]
  8. NITROGLYCERIN [Concomitant]

REACTIONS (7)
  - ANOREXIA [None]
  - ASPARTATE AMINOTRANSFERASE INCREASED [None]
  - BLOOD BILIRUBIN INCREASED [None]
  - ENCEPHALOPATHY [None]
  - MALAISE [None]
  - NAUSEA [None]
  - VOMITING [None]
